FAERS Safety Report 17624299 (Version 1)
Quarter: 2020Q2

REPORT INFORMATION
  Report Type: Spontaneous
  Country: CN (occurrence: CN)
  Receive Date: 20200403
  Receipt Date: 20200403
  Transmission Date: 20200713
  Serious: Yes (Other)
  Sender: FDA-Public Use
  Company Number: CN-SA-2020SA079511

PATIENT
  Age: 68 Year
  Sex: Female
  Weight: 48.9 kg

DRUGS (1)
  1. STILNOX [Suspect]
     Active Substance: ZOLPIDEM TARTRATE
     Indication: INITIAL INSOMNIA
     Dosage: 10 MG, QD
     Route: 048
     Dates: start: 20200318, end: 20200318

REACTIONS (3)
  - Disorganised speech [Recovering/Resolving]
  - Restlessness [Recovering/Resolving]
  - Delirium [Recovering/Resolving]

NARRATIVE: CASE EVENT DATE: 20200319
